FAERS Safety Report 23169137 (Version 2)
Quarter: 2023Q4

REPORT INFORMATION
  Report Type: Spontaneous
  Country: CN (occurrence: CN)
  Receive Date: 20231110
  Receipt Date: 20231220
  Transmission Date: 20240110
  Serious: Yes (Other)
  Sender: FDA-Public Use
  Company Number: CN-ROCHE-3449018

PATIENT
  Age: 66 Year
  Sex: Female
  Weight: 53 kg

DRUGS (3)
  1. CAPECITABINE [Suspect]
     Active Substance: CAPECITABINE
     Indication: Triple negative breast cancer
     Dosage: MOST RECENT DOSE OF CAPECITABINE PRIOR TO EVENT ONSET 20/OCT/2023?DAILY DOSE: 2900 MILLIGRAM
     Route: 048
     Dates: start: 20230208
  2. CAPECITABINE [Suspect]
     Active Substance: CAPECITABINE
     Indication: Triple negative breast cancer
     Route: 048
  3. ATEZOLIZUMAB [Suspect]
     Active Substance: ATEZOLIZUMAB
     Indication: Triple negative breast cancer
     Dosage: - MOST RECENT DOSE OF BLINDED ATEZOLIZUMAB PRIOR TO AE ONSET 9/OCT/2023?- ON 31/OCT/2023, SHE RE...
     Route: 042
     Dates: start: 20230208

REACTIONS (1)
  - Radius fracture [Recovered/Resolved]

NARRATIVE: CASE EVENT DATE: 20231020
